FAERS Safety Report 19061788 (Version 1)
Quarter: 2021Q1

REPORT INFORMATION
  Report Type: Spontaneous
  Country: US (occurrence: US)
  Receive Date: 20210325
  Receipt Date: 20210325
  Transmission Date: 20210420
  Serious: Yes (Other)
  Sender: FDA-Public Use
  Company Number: US-BAUSCH-BL-2021-008977

PATIENT
  Age: 22 Year
  Sex: Female

DRUGS (2)
  1. PRIMIDONE. [Suspect]
     Active Substance: PRIMIDONE
     Indication: EPILEPSY
     Route: 048
  2. MYSOLINE [Suspect]
     Active Substance: PRIMIDONE
     Indication: EPILEPSY
     Route: 048
     Dates: start: 196809

REACTIONS (2)
  - Maternal exposure during pregnancy [Unknown]
  - Petit mal epilepsy [Unknown]

NARRATIVE: CASE EVENT DATE: 1972
